FAERS Safety Report 4450954-2 (Version None)
Quarter: 2004Q3

REPORT INFORMATION
  Report Type: 
  Country: None (occurrence: None)
  Receive Date: 20040916
  Receipt Date: 20040129
  Transmission Date: 20050211
  Serious: Yes (Other)
  Sender: FDA-Public Use
  Company Number: US-BRISTOL-MYERS SQUIBB COMPANY-12492666

PATIENT
  Age: 43 Year
  Sex: Female

DRUGS (6)
  1. STADOL [Suspect]
     Indication: MIGRAINE
     Route: 045
     Dates: start: 19970101
  2. STADOL [Suspect]
     Indication: MIGRAINE
     Dosage: ROUTE: ^INJECTION^
     Dates: start: 19970101
  3. PHENERGAN HCL [Concomitant]
  4. AMITRIPTYLINE HCL [Concomitant]
  5. HYDROCODONE [Concomitant]
  6. PROMETHAZINE [Concomitant]

REACTIONS (2)
  - DEPENDENCE [None]
  - DRUG WITHDRAWAL SYNDROME [None]
